FAERS Safety Report 4492419-8 (Version None)
Quarter: 2004Q4

REPORT INFORMATION
  Report Type: 
  Country: None (occurrence: None)
  Receive Date: 20041102
  Receipt Date: 20041102
  Transmission Date: 20050328
  Serious: Yes (Other)
  Sender: FDA-Public Use
  Company Number: None

PATIENT
  Sex: Male
  Weight: 83.9154 kg

DRUGS (2)
  1. SIROLIMUS-STENT [Suspect]
  2. CYPHER STENT [Concomitant]

REACTIONS (2)
  - DYSPNOEA [None]
  - POST PROCEDURAL COMPLICATION [None]
